FAERS Safety Report 19362835 (Version 1)
Quarter: 2021Q2

REPORT INFORMATION
  Report Type: Spontaneous
  Country: US (occurrence: US)
  Receive Date: 20210603
  Receipt Date: 20210603
  Transmission Date: 20210717
  Serious: Yes (Hospitalization, Other)
  Sender: FDA-Public Use
  Company Number: US-LEADINGPHARMA-US-2021LEALIT00178

PATIENT
  Age: 40 Year
  Sex: Female

DRUGS (4)
  1. FUROSEMIDE. [Suspect]
     Active Substance: FUROSEMIDE
     Indication: ACUTE LEFT VENTRICULAR FAILURE
     Route: 065
  2. THIAMINE. [Interacting]
     Active Substance: THIAMINE
     Indication: TREMOR
  3. THIAMINE. [Interacting]
     Active Substance: THIAMINE
     Indication: ENCEPHALOPATHY
     Route: 065
  4. THIAMINE. [Interacting]
     Active Substance: THIAMINE
     Indication: NYSTAGMUS

REACTIONS (4)
  - Nystagmus [Recovered/Resolved]
  - Encephalopathy [Recovered/Resolved]
  - Tremor [Recovered/Resolved]
  - Condition aggravated [Recovered/Resolved]
